FAERS Safety Report 19460498 (Version 2)
Quarter: 2021Q2

REPORT INFORMATION
  Report Type: Spontaneous
  Country: TR (occurrence: TR)
  Receive Date: 20210625
  Receipt Date: 20210630
  Transmission Date: 20210717
  Serious: Yes (Hospitalization, Other)
  Sender: FDA-Public Use
  Company Number: TR-009507513-2106TUR005540

PATIENT
  Age: 45 Year
  Sex: Female

DRUGS (1)
  1. INVANZ [Suspect]
     Active Substance: ERTAPENEM SODIUM
     Indication: URINARY TRACT INFECTION
     Dosage: UNK

REACTIONS (4)
  - Respiratory distress [Unknown]
  - Metabolic acidosis [Unknown]
  - General physical health deterioration [Recovered/Resolved]
  - Haemodynamic instability [Unknown]
